FAERS Safety Report 9684223 (Version 1)
Quarter: 2013Q4

REPORT INFORMATION
  Report Type: Spontaneous
  Country: US (occurrence: US)
  Receive Date: 20131112
  Receipt Date: 20131112
  Transmission Date: 20140711
  Serious: Yes (Hospitalization)
  Sender: FDA-Public Use
  Company Number: US-GLAXOSMITHKLINE-A1048859A

PATIENT
  Age: 64 Year
  Sex: Female

DRUGS (2)
  1. ADVAIR [Suspect]
     Indication: CHRONIC OBSTRUCTIVE PULMONARY DISEASE
     Dosage: 1PUFF TWICE PER DAY
     Route: 055
     Dates: start: 2007
  2. NO CONCURRENT MEDICATION [Concomitant]

REACTIONS (3)
  - Chronic obstructive pulmonary disease [Recovered/Resolved]
  - Emergency care examination [Recovered/Resolved]
  - Dyspnoea [Recovering/Resolving]
